FAERS Safety Report 10506341 (Version 2)
Quarter: 2014Q4

REPORT INFORMATION
  Report Type: Report from Study
  Country: CO (occurrence: CO)
  Receive Date: 20141009
  Receipt Date: 20141009
  Transmission Date: 20150528
  Serious: Yes (Death)
  Sender: FDA-Public Use
  Company Number: CO-AMGEN-COLSP2014053875

PATIENT
  Age: 72 Year
  Sex: Male
  Weight: 59 kg

DRUGS (8)
  1. CALCIUM FOLINATE [Concomitant]
     Active Substance: LEUCOVORIN CALCIUM
     Indication: PREMEDICATION
     Dosage: 670 UNK, SINGLE DOSE
     Route: 042
     Dates: start: 20140703, end: 20140703
  2. 5 FLUORO URACIL [Concomitant]
     Active Substance: FLUOROURACIL
     Indication: COLORECTAL CANCER
     Dosage: 4030 UNK, SINGLE DOSE
     Route: 042
     Dates: start: 20140703, end: 20140703
  3. IRINOTECAN [Concomitant]
     Active Substance: IRINOTECAN
     Indication: COLORECTAL CANCER
     Dosage: 300 UNK, SINGLE DOSE
     Route: 042
     Dates: start: 20140703, end: 20140703
  4. DEXAMETHASONE. [Concomitant]
     Active Substance: DEXAMETHASONE
     Indication: PREMEDICATION
     Dosage: 24 UNK, SINGLE DOSE
     Route: 042
     Dates: start: 20140703, end: 20140703
  5. VECTIBIX [Suspect]
     Active Substance: PANITUMUMAB
     Indication: COLORECTAL CANCER METASTATIC
     Dosage: 360 MCG, EVERY 15 DAYS
     Route: 042
     Dates: start: 20140506, end: 20140703
  6. ONDANSETRON [Concomitant]
     Active Substance: ONDANSETRON
     Indication: PREMEDICATION
     Dosage: 16 UNK, SINGLE DOSE
     Route: 042
     Dates: start: 20140703, end: 20140703
  7. FOLINIC ACID [Concomitant]
     Active Substance: LEUCOVORIN
     Indication: COLORECTAL CANCER METASTATIC
     Dosage: 670 UNK, SINGLE DOSE
     Route: 042
     Dates: start: 20140703, end: 20140703
  8. ATROPINE [Concomitant]
     Active Substance: ATROPINE
     Indication: PREMEDICATION
     Dosage: 0.5 UNK, SINGLE DOSE
     Route: 058
     Dates: start: 20140703, end: 20140703

REACTIONS (2)
  - Death [Fatal]
  - Rash [Recovering/Resolving]

NARRATIVE: CASE EVENT DATE: 201405
